FAERS Safety Report 20127442 (Version 5)
Quarter: 2023Q1

REPORT INFORMATION
  Report Type: Spontaneous
  Country: FR (occurrence: FR)
  Receive Date: 20211129
  Receipt Date: 20230327
  Transmission Date: 20230418
  Serious: Yes (Hospitalization, Other)
  Sender: FDA-Public Use
  Company Number: FR-CELGENE-FRA-20210906091

PATIENT
  Age: 74 Year
  Sex: Female

DRUGS (30)
  1. AZACITIDINE [Suspect]
     Active Substance: AZACITIDINE
     Indication: Acute myeloid leukaemia
     Dosage: 75 MILLIGRAM
     Route: 065
     Dates: start: 20180824
  2. AZACITIDINE [Suspect]
     Active Substance: AZACITIDINE
     Dosage: 400 MILLIGRAM
     Route: 065
     Dates: start: 20180816
  3. AZACITIDINE [Suspect]
     Active Substance: AZACITIDINE
     Dosage: UNK
     Route: 058
     Dates: start: 20210706
  4. AZACITIDINE [Suspect]
     Active Substance: AZACITIDINE
     Dosage: 400 MILLIGRAM
     Route: 058
     Dates: start: 20210816
  5. AZACITIDINE [Suspect]
     Active Substance: AZACITIDINE
     Dosage: 75 MG/M2
     Route: 058
     Dates: start: 20210824
  6. AZACITIDINE [Suspect]
     Active Substance: AZACITIDINE
     Dosage: UNK
     Route: 065
     Dates: start: 20210824
  7. AZACITIDINE [Suspect]
     Active Substance: AZACITIDINE
     Dosage: UNK
     Route: 065
     Dates: start: 20210706, end: 20210824
  8. PEVONEDISTAT [Suspect]
     Active Substance: PEVONEDISTAT
     Indication: Acute myeloid leukaemia
     Dosage: UNK
     Route: 065
     Dates: start: 20210706
  9. PEVONEDISTAT [Suspect]
     Active Substance: PEVONEDISTAT
     Dosage: UNK
     Route: 065
     Dates: start: 20210824
  10. PEVONEDISTAT [Suspect]
     Active Substance: PEVONEDISTAT
     Dosage: UNK
     Route: 065
     Dates: start: 20210706, end: 20210824
  11. VENETOCLAX [Suspect]
     Active Substance: VENETOCLAX
     Indication: Product used for unknown indication
     Dosage: 400 MILLIGRAM
     Route: 065
     Dates: start: 20210816
  12. VENETOCLAX [Suspect]
     Active Substance: VENETOCLAX
     Indication: Acute myeloid leukaemia
     Dosage: 400 MILLIGRAM
     Route: 048
     Dates: start: 20210706
  13. VENETOCLAX [Suspect]
     Active Substance: VENETOCLAX
     Dosage: UNK
     Route: 065
     Dates: start: 20210824
  14. VENETOCLAX [Suspect]
     Active Substance: VENETOCLAX
     Dosage: 100 MG (FREQUENCY TEXT: NOT PROVIDED)
     Route: 048
     Dates: start: 20210706
  15. VENETOCLAX [Suspect]
     Active Substance: VENETOCLAX
     Dosage: UNK
     Route: 048
     Dates: start: 20210706, end: 20210824
  16. VENETOCLAX [Suspect]
     Active Substance: VENETOCLAX
     Dosage: 200 MG(FREQUENCY TEXT: NOT PROVIDED)
     Route: 048
     Dates: start: 20210707
  17. VENETOCLAX [Suspect]
     Active Substance: VENETOCLAX
     Dosage: 400 MG(FREQUENCY TEXT: NOT PROVIDED)
     Route: 048
     Dates: start: 20210708, end: 20210910
  18. VENETOCLAX [Suspect]
     Active Substance: VENETOCLAX
     Dosage: 100 MG(FREQUENCY TEXT: NOT PROVIDED)
     Route: 048
     Dates: start: 20211109
  19. VENETOCLAX [Suspect]
     Active Substance: VENETOCLAX
     Dosage: 70 MG(FREQUENCY TEXT: NOT PROVIDED)
     Route: 048
     Dates: start: 20211228
  20. VENETOCLAX [Suspect]
     Active Substance: VENETOCLAX
     Dosage: 50 MG(FREQUENCY TEXT: NOT PROVIDED)
     Route: 048
     Dates: start: 20220221
  21. VENETOCLAX [Suspect]
     Active Substance: VENETOCLAX
     Dosage: 20 MG(FREQUENCY TEXT: NOT PROVIDED)
     Route: 048
     Dates: start: 20220503
  22. FOLIC ACID [Concomitant]
     Active Substance: FOLIC ACID
     Indication: Folate deficiency
     Dosage: UNK
     Route: 065
  23. BETAMETHASONE DIPROPIONATE [Concomitant]
     Active Substance: BETAMETHASONE DIPROPIONATE
     Indication: Prophylaxis
     Dosage: UNK
     Route: 065
     Dates: start: 20210712
  24. LOSARTAN [Concomitant]
     Active Substance: LOSARTAN
     Indication: Hypertension
     Dosage: UNK
     Route: 065
  25. LOSARTAN [Concomitant]
     Active Substance: LOSARTAN
     Dosage: UNK
     Route: 065
     Dates: start: 20210712
  26. HYDROXYUREA [Concomitant]
     Active Substance: HYDROXYUREA
     Indication: Hyperleukocytosis
     Dosage: UNK
     Route: 065
     Dates: start: 20210625
  27. VALACYCLOVIR HYDROCHLORIDE [Concomitant]
     Active Substance: VALACYCLOVIR HYDROCHLORIDE
     Indication: Infection prophylaxis
     Dosage: UNK
     Route: 065
     Dates: start: 20210625
  28. IRBESARTAN [Concomitant]
     Active Substance: IRBESARTAN
     Indication: Hypertension
     Dosage: UNK
     Route: 065
  29. IRBESARTAN [Concomitant]
     Active Substance: IRBESARTAN
     Dosage: UNK
     Route: 065
     Dates: start: 20210712, end: 20210913
  30. DIPROSONE [Concomitant]
     Active Substance: BETAMETHASONE DIPROPIONATE
     Indication: Prophylaxis
     Dosage: UNK
     Route: 065
     Dates: start: 20210712

REACTIONS (2)
  - Device related infection [Recovered/Resolved]
  - Escherichia sepsis [Recovered/Resolved]

NARRATIVE: CASE EVENT DATE: 20210910
